FAERS Safety Report 9157213 (Version 2)
Quarter: 2013Q1

REPORT INFORMATION
  Report Type: Spontaneous
  Country: US (occurrence: US)
  Receive Date: 20130312
  Receipt Date: 20130318
  Transmission Date: 20140127
  Serious: Yes (Other)
  Sender: FDA-Public Use
  Company Number: US-PFIZER INC-2013080716

PATIENT
  Age: 52 Year
  Sex: Female
  Weight: 61.2 kg

DRUGS (5)
  1. LYRICA [Suspect]
     Indication: RHEUMATOID ARTHRITIS
     Dosage: 450 MG, 2X/DAY
     Route: 048
     Dates: start: 2010
  2. LYRICA [Suspect]
     Indication: FIBROMYALGIA
  3. PROTONIX [Suspect]
     Indication: GASTROOESOPHAGEAL REFLUX DISEASE
     Dosage: 20 MG, 1X/DAY
     Dates: start: 2005
  4. CYMBALTA [Concomitant]
     Indication: RHEUMATOID ARTHRITIS
     Dosage: 60 MG, 1X/DAY
  5. METHOTREXATE [Concomitant]
     Indication: FIBROMYALGIA
     Dosage: 2.5 MG, 6X/WEEK
     Route: 048

REACTIONS (2)
  - Dementia Alzheimer^s type [Not Recovered/Not Resolved]
  - Memory impairment [Not Recovered/Not Resolved]
